FAERS Safety Report 5310760-3 (Version None)
Quarter: 2007Q2

REPORT INFORMATION
  Report Type: 
  Country: None (occurrence: None)
  Receive Date: 20070428
  Receipt Date: 20070416
  Transmission Date: 20071010
  Serious: Yes (Other)
  Sender: FDA-Public Use
  Company Number: JP-PFIZER INC-2007026862

PATIENT
  Age: 74 Year
  Sex: Male

DRUGS (1)
  1. ZITHROMAC [Suspect]
     Indication: GINGIVAL DISORDER
     Route: 048

REACTIONS (1)
  - INTRAOCULAR PRESSURE INCREASED [None]
